FAERS Safety Report 12723436 (Version 2)
Quarter: 2016Q3

REPORT INFORMATION
  Report Type: Spontaneous
  Country: US (occurrence: US)
  Receive Date: 20160908
  Receipt Date: 20160928
  Transmission Date: 20161109
  Serious: No
  Sender: FDA-Public Use
  Company Number: PHHY2016US123803

PATIENT
  Sex: Female
  Weight: 95.69 kg

DRUGS (1)
  1. ZOFRAN [Suspect]
     Active Substance: ONDANSETRON HYDROCHLORIDE
     Indication: VOMITING IN PREGNANCY
     Dosage: UNK
     Route: 048
     Dates: start: 200601

REACTIONS (4)
  - Maternal exposure during pregnancy [Unknown]
  - Anxiety [Unknown]
  - Product use issue [Unknown]
  - Emotional distress [Unknown]
